FAERS Safety Report 5542555-X (Version None)
Quarter: 2007Q4

REPORT INFORMATION
  Report Type: 
  Country: None (occurrence: None)
  Receive Date: 20071120
  Receipt Date: 20070517
  Transmission Date: 20080405
  Serious: Yes (Other)
  Sender: FDA-Public Use
  Company Number: 37228

PATIENT
  Age: 11 Year
  Sex: Female

DRUGS (1)
  1. METHOTREXATE [Suspect]
     Indication: WEGENER'S GRANULOMATOSIS
     Dosage: 0.8 ML SUBCUTANEOUSLY ONCE WE
     Route: 058
     Dates: start: 20070510

REACTIONS (2)
  - BURNING SENSATION [None]
  - INJECTION SITE REACTION [None]
